FAERS Safety Report 21744034 (Version 1)
Quarter: 2022Q4

REPORT INFORMATION
  Report Type: Report from Study
  Country: US (occurrence: US)
  Receive Date: 20221217
  Receipt Date: 20221217
  Transmission Date: 20230113
  Serious: No
  Sender: FDA-Public Use
  Company Number: US-ABBVIE-4202567

PATIENT
  Sex: Female

DRUGS (1)
  1. HUMIRA [Suspect]
     Active Substance: ADALIMUMAB
     Indication: Product used for unknown indication
     Dosage: CITRATE FREE
     Route: 058
     Dates: start: 2012

REACTIONS (6)
  - Condition aggravated [Unknown]
  - Pain [Unknown]
  - Dyspnoea [Unknown]
  - Urinary tract infection [Unknown]
  - Tremor [Unknown]
  - Drug ineffective [Unknown]
